FAERS Safety Report 17336176 (Version 1)
Quarter: 2020Q1

REPORT INFORMATION
  Report Type: Report from Study
  Country: NL (occurrence: NL)
  Receive Date: 20200128
  Receipt Date: 20200128
  Transmission Date: 20200409
  Serious: Yes (Other)
  Sender: FDA-Public Use
  Company Number: NL-MYLANLABS-2020M1009243

PATIENT
  Sex: Female
  Weight: 69.6 kg

DRUGS (2)
  1. AZATHIOPRINE. [Suspect]
     Active Substance: AZATHIOPRINE
     Indication: INFLAMMATORY BOWEL DISEASE
     Dosage: UNK
     Dates: start: 20161118, end: 20170223
  2. THIOSIX [Concomitant]
     Active Substance: THIOGUANINE ANHYDROUS
     Indication: INFLAMMATORY BOWEL DISEASE
     Dosage: 20 MILLIGRAM, QD (DAILY)
     Dates: start: 20170304, end: 20170405

REACTIONS (5)
  - Pancytopenia [Unknown]
  - Hepatic function abnormal [Unknown]
  - Leukopenia [Unknown]
  - Anaemia [Unknown]
  - Therapy non-responder [Unknown]
